FAERS Safety Report 9449015 (Version 2)
Quarter: 2013Q4

REPORT INFORMATION
  Report Type: Spontaneous
  Country: MT (occurrence: MT)
  Receive Date: 20130808
  Receipt Date: 20131113
  Transmission Date: 20140711
  Serious: Yes (Hospitalization)
  Sender: FDA-Public Use
  Company Number: PHHY2013MT082861

PATIENT
  Age: 57 Year
  Sex: Male

DRUGS (1)
  1. WARFARIN [Suspect]
     Dosage: 15 MG DAILY

REACTIONS (16)
  - Small intestinal obstruction [Recovered/Resolved]
  - Nausea [Recovered/Resolved]
  - Vomiting [Recovered/Resolved]
  - Abdominal tenderness [Recovered/Resolved]
  - Abdominal pain [Recovered/Resolved]
  - Blood pressure decreased [Recovered/Resolved]
  - Coagulopathy [Recovered/Resolved]
  - Epistaxis [Recovered/Resolved]
  - Lip haematoma [Recovered/Resolved]
  - Rectal haemorrhage [Recovered/Resolved]
  - Gingival bleeding [Recovered/Resolved]
  - Contusion [Recovered/Resolved]
  - Prothrombin time prolonged [Recovered/Resolved]
  - Intestinal haematoma [Recovered/Resolved]
  - International normalised ratio increased [Recovered/Resolved]
  - Accidental overdose [Recovered/Resolved]
